FAERS Safety Report 8156439-4 (Version None)
Quarter: 2012Q1

REPORT INFORMATION
  Report Type: 
  Country: None (occurrence: None)
  Receive Date: 20120222
  Receipt Date: 20120214
  Transmission Date: 20120608
  Serious: Yes (Other)
  Sender: FDA-Public Use
  Company Number: IL-SANOFI-AVENTIS-2012SA010770

PATIENT

DRUGS (2)
  1. CEPHALOSPORINS AND RELATED SUBSTANCES [Concomitant]
     Indication: INFECTION PROPHYLAXIS
     Dosage: 30 MINUTES BEFORE SURGERY
     Route: 042
  2. CLOPIDOGREL BISULFATE [Suspect]
     Route: 048

REACTIONS (1)
  - ACUTE CORONARY SYNDROME [None]
